FAERS Safety Report 14245268 (Version 1)
Quarter: 2017Q4

REPORT INFORMATION
  Report Type: Spontaneous
  Country: US (occurrence: US)
  Receive Date: 20171202
  Receipt Date: 20171202
  Transmission Date: 20180321
  Serious: No
  Sender: FDA-Public Use
  Company Number: US-ENDO PHARMACEUTICALS INC-2017-000419

PATIENT
  Age: 50 Year
  Sex: Male
  Weight: 72.56 kg

DRUGS (4)
  1. XIAFLEX [Suspect]
     Active Substance: COLLAGENASE CLOSTRIDIUM HISTOLYTICUM
     Indication: PEYRONIE^S DISEASE
     Dosage: FIRST INJECTION OF SECOND CYCLE
     Route: 026
     Dates: start: 20170111
  2. XIAFLEX [Suspect]
     Active Substance: COLLAGENASE CLOSTRIDIUM HISTOLYTICUM
     Dosage: SECOND INJECTION OF SECOND CYCLE
     Route: 026
     Dates: start: 20170113
  3. XIAFLEX [Suspect]
     Active Substance: COLLAGENASE CLOSTRIDIUM HISTOLYTICUM
     Dosage: FIRST INJECTION OF FIRST CYCLE
     Route: 026
     Dates: start: 20161130
  4. XIAFLEX [Suspect]
     Active Substance: COLLAGENASE CLOSTRIDIUM HISTOLYTICUM
     Dosage: SECOND INJECTION OF FIRST CYCLE
     Route: 026
     Dates: start: 20161202

REACTIONS (4)
  - Drug effect decreased [Not Recovered/Not Resolved]
  - Penis disorder [Not Recovered/Not Resolved]
  - Painful erection [Unknown]
  - Penile pain [Not Recovered/Not Resolved]

NARRATIVE: CASE EVENT DATE: 201701
